FAERS Safety Report 9842892 (Version 1)
Quarter: 2013Q4

REPORT INFORMATION
  Report Type: Spontaneous
  Country: BR (occurrence: None)
  Receive Date: 20131211
  Receipt Date: 20131211
  Transmission Date: 20140711
  Serious: Yes (Other)
  Sender: FDA-Public Use
  Company Number: PRA1-2011-00018

PATIENT
  Age: 15 Year
  Sex: Male
  Weight: 27 kg

DRUGS (2)
  1. ELAPRASE (IDURSULFASE) CONCENTRATE FOR SOLUTION FOR INFUSION [Suspect]
     Indication: MUCOPOLYSACCHARIDOSIS II
     Dosage: 2 AMPULES, UNKNOWN, IV DRIP
     Route: 041
     Dates: start: 2007
  2. CARBAMAZEPINE (CARBAMAZEPINE) [Concomitant]

REACTIONS (1)
  - Convulsion [None]
